FAERS Safety Report 17604672 (Version 2)
Quarter: 2020Q2

REPORT INFORMATION
  Report Type: Spontaneous
  Country: US (occurrence: US)
  Receive Date: 20200331
  Receipt Date: 20200512
  Transmission Date: 20200713
  Serious: No
  Sender: FDA-Public Use
  Company Number: US-PFIZER INC-2020131055

PATIENT
  Age: 60 Year
  Sex: Female

DRUGS (2)
  1. CELEBREX [Suspect]
     Active Substance: CELECOXIB
  2. FLECTOR [Suspect]
     Active Substance: DICLOFENAC EPOLAMINE

REACTIONS (1)
  - Blood pressure decreased [Unknown]
